FAERS Safety Report 8313989-5 (Version None)
Quarter: 2012Q2

REPORT INFORMATION
  Report Type: 
  Country: None (occurrence: None)
  Receive Date: 20120426
  Receipt Date: 20110808
  Transmission Date: 20120825
  Serious: Yes (Other)
  Sender: FDA-Public Use
  Company Number: US-TEVA-US022315

PATIENT
  Sex: Female

DRUGS (2)
  1. PROVIGIL [Suspect]
     Route: 048
  2. PAXIL [Suspect]
     Route: 065

REACTIONS (3)
  - HYPERTENSION [None]
  - HALLUCINATION [None]
  - DRUG INTERACTION [None]
